FAERS Safety Report 7677972-5 (Version None)
Quarter: 2011Q3

REPORT INFORMATION
  Report Type: 
  Country: None (occurrence: None)
  Receive Date: 20110811
  Receipt Date: 20110727
  Transmission Date: 20111222
  Serious: Yes (Death, Hospitalization)
  Sender: FDA-Public Use
  Company Number: US-GLAXOSMITHKLINE-A0884060A

PATIENT
  Age: 69 Year
  Sex: Female

DRUGS (4)
  1. ZOCOR [Concomitant]
  2. GLUCOPHAGE [Concomitant]
  3. LISINOPRIL [Concomitant]
  4. AVANDIA [Suspect]
     Indication: DIABETES MELLITUS
     Dosage: 8MG TWICE PER DAY
     Route: 048
     Dates: start: 19990501, end: 20070901

REACTIONS (9)
  - CARDIAC ARREST [None]
  - SEPSIS [None]
  - SEPTIC SHOCK [None]
  - ENCEPHALOPATHY [None]
  - CARDIAC FAILURE CONGESTIVE [None]
  - CARDIO-RESPIRATORY ARREST [None]
  - INFECTIOUS PERITONITIS [None]
  - PULMONARY OEDEMA [None]
  - ACUTE RESPIRATORY FAILURE [None]
